FAERS Safety Report 10432087 (Version 11)
Quarter: 2016Q4

REPORT INFORMATION
  Report Type: Report from Study
  Country: AU (occurrence: AU)
  Receive Date: 20140905
  Receipt Date: 20161019
  Transmission Date: 20170206
  Serious: Yes (Other)
  Sender: FDA-Public Use
  Company Number: AU-ROCHE-1285463

PATIENT
  Age: 39 Year
  Sex: Female
  Weight: 100 kg

DRUGS (23)
  1. ACTEMRA [Suspect]
     Active Substance: TOCILIZUMAB
     Route: 042
     Dates: start: 20150117
  2. ACTEMRA [Suspect]
     Active Substance: TOCILIZUMAB
     Route: 042
  3. AMITRIPTYLINE [Concomitant]
     Active Substance: AMITRIPTYLINE
     Dosage: NOCTE
     Route: 065
  4. ACTEMRA [Suspect]
     Active Substance: TOCILIZUMAB
     Route: 042
     Dates: start: 20150314
  5. OXYCONTIN [Suspect]
     Active Substance: OXYCODONE HYDROCHLORIDE
     Dosage: NOCTE
     Route: 065
  6. ACTEMRA [Suspect]
     Active Substance: TOCILIZUMAB
     Route: 042
     Dates: start: 20141008
  7. ACTEMRA [Suspect]
     Active Substance: TOCILIZUMAB
     Dosage: DOSE REDUCED DUE TO MOUTH ULCERS, BRUISING AND BLEEDING.
     Route: 042
     Dates: start: 201303, end: 201309
  8. OXYCONTIN [Suspect]
     Active Substance: OXYCODONE HYDROCHLORIDE
     Indication: PRODUCT USED FOR UNKNOWN INDICATION
     Dosage: NOCTE
     Route: 065
  9. PANADEINE FORTE [Concomitant]
     Active Substance: ACETAMINOPHEN\CODEINE PHOSPHATE
     Dosage: PRN
     Route: 065
  10. AMITRIPTYLINE [Concomitant]
     Active Substance: AMITRIPTYLINE
     Dosage: NOCTE
     Route: 065
  11. HYDROXYCHLOROQUINE [Concomitant]
     Active Substance: HYDROXYCHLOROQUINE
     Indication: RHEUMATOID ARTHRITIS
     Route: 048
     Dates: start: 201006
  12. ACTEMRA [Suspect]
     Active Substance: TOCILIZUMAB
     Dosage: DUE TO LIVER ABNORMALITY
     Route: 042
     Dates: start: 201310
  13. ACTEMRA [Suspect]
     Active Substance: TOCILIZUMAB
     Dosage: DOSE INCREASED TO 600 MG DUE TO LIVER ABNORMALITY
     Route: 042
     Dates: start: 201403
  14. FISH OIL [Concomitant]
     Active Substance: FISH OIL
     Dosage: DOUBLE STRENGTH
     Route: 048
  15. ACTEMRA [Suspect]
     Active Substance: TOCILIZUMAB
     Route: 042
     Dates: start: 20140426
  16. SULFASALAZINE. [Suspect]
     Active Substance: SULFASALAZINE
     Indication: RHEUMATOID ARTHRITIS
     Route: 048
     Dates: start: 201003
  17. CIPRAMIL [Concomitant]
     Active Substance: CITALOPRAM HYDROBROMIDE
     Route: 065
     Dates: start: 2016
  18. ACTEMRA [Suspect]
     Active Substance: TOCILIZUMAB
     Indication: RHEUMATOID ARTHRITIS
     Dosage: TOTAL MONTHLY DOSE : 800 MG
     Route: 042
     Dates: start: 20121222
  19. ACTEMRA [Suspect]
     Active Substance: TOCILIZUMAB
     Route: 042
     Dates: start: 201301
  20. ACTEMRA [Suspect]
     Active Substance: TOCILIZUMAB
     Route: 042
     Dates: start: 201302
  21. ACTEMRA [Suspect]
     Active Substance: TOCILIZUMAB
     Route: 042
     Dates: start: 20160730
  22. ZOLOFT [Concomitant]
     Active Substance: SERTRALINE HYDROCHLORIDE
     Route: 065
     Dates: start: 201402
  23. PARACETAMOL [Concomitant]
     Active Substance: ACETAMINOPHEN
     Dosage: 2 TABS TDS PRN
     Route: 048

REACTIONS (27)
  - Contusion [Recovered/Resolved]
  - Haemorrhage [Recovered/Resolved]
  - Rheumatoid arthritis [Unknown]
  - Paraesthesia [Unknown]
  - Synovitis [Unknown]
  - Joint swelling [Unknown]
  - Thrombocytopenia [Recovered/Resolved]
  - Musculoskeletal stiffness [Unknown]
  - Weight decreased [Unknown]
  - Arthralgia [Unknown]
  - Neutropenia [Recovered/Resolved]
  - Blood creatinine increased [Unknown]
  - Blood cholesterol increased [Unknown]
  - Joint range of motion decreased [Unknown]
  - Joint dislocation [Unknown]
  - Liver function test increased [Not Recovered/Not Resolved]
  - Liver function test abnormal [Recovered/Resolved]
  - Drug ineffective [Unknown]
  - Nail infection [Recovering/Resolving]
  - Musculoskeletal pain [Unknown]
  - Abdominal distension [Unknown]
  - Mouth ulceration [Unknown]
  - Blood glucose increased [Recovered/Resolved]
  - Pain [Unknown]
  - Hypokinesia [Unknown]
  - Injury [Unknown]
  - Synovial cyst [Unknown]

NARRATIVE: CASE EVENT DATE: 201302
